FAERS Safety Report 14700380 (Version 1)
Quarter: 2018Q1

REPORT INFORMATION
  Report Type: Spontaneous
  Country: CN (occurrence: CN)
  Receive Date: 20180330
  Receipt Date: 20180330
  Transmission Date: 20180509
  Serious: Yes (Other)
  Sender: FDA-Public Use
  Company Number: CN-009507513-1803CHN011702

PATIENT
  Age: 32 Year
  Sex: Female

DRUGS (1)
  1. MARVELON [Suspect]
     Active Substance: DESOGESTREL\ETHINYL ESTRADIOL
     Indication: UTERINE HAEMORRHAGE
     Dosage: 1 TABLET EVERY 4 HOURS
     Route: 048

REACTIONS (4)
  - Acute myocardial infarction [Unknown]
  - Overdose [Unknown]
  - Off label use [Unknown]
  - Embolism [Unknown]
